FAERS Safety Report 22150394 (Version 1)
Quarter: 2023Q1

REPORT INFORMATION
  Report Type: Spontaneous
  Country: US (occurrence: US)
  Receive Date: 20230329
  Receipt Date: 20230329
  Transmission Date: 20230418
  Serious: Yes (Other)
  Sender: FDA-Public Use
  Company Number: US-AMGEN-USASP2023050903

PATIENT
  Age: 85 Year
  Sex: Male

DRUGS (1)
  1. BEVACIZUMAB [Suspect]
     Active Substance: BEVACIZUMAB
     Indication: Age-related macular degeneration
     Dosage: 1.25 MILLIGRAM (0.05 CC)

REACTIONS (3)
  - Retinal vascular occlusion [Unknown]
  - Retinal haemorrhage [Unknown]
  - Off label use [Unknown]
